FAERS Safety Report 5104608-X (Version None)
Quarter: 2006Q3

REPORT INFORMATION
  Report Type: 
  Country: None (occurrence: None)
  Receive Date: 20060914
  Receipt Date: 20060522
  Transmission Date: 20061208
  Serious: No
  Sender: FDA-Public Use
  Company Number: US-BRISTOL-MYERS SQUIBB COMPANY-13385174

PATIENT
  Age: 51 Year
  Sex: Female
  Weight: 73 kg

DRUGS (2)
  1. BUSPAR [Suspect]
     Indication: ANXIETY
     Route: 048
  2. BUSPAR [Suspect]
     Indication: INSOMNIA
     Route: 048

REACTIONS (1)
  - DRUG EFFECT DECREASED [None]
